FAERS Safety Report 21498837 (Version 6)
Quarter: 2023Q2

REPORT INFORMATION
  Report Type: Spontaneous
  Country: AR (occurrence: AR)
  Receive Date: 20221024
  Receipt Date: 20230602
  Transmission Date: 20230722
  Serious: Yes (Other)
  Sender: FDA-Public Use
  Company Number: AR-MYLANLABS-2022M1115977

PATIENT
  Age: 24 Year
  Sex: Male

DRUGS (4)
  1. CLOZAPINE [Suspect]
     Active Substance: CLOZAPINE
     Indication: Autism spectrum disorder
     Dosage: 500 MILLIGRAM, QD
     Route: 065
     Dates: start: 20180515
  2. LAMOTRIGINE [Concomitant]
     Active Substance: LAMOTRIGINE
     Dosage: 100 MILLIGRAM, QD
     Route: 065
  3. LEVOMEPROMAZINE [Concomitant]
     Active Substance: LEVOMEPROMAZINE
     Dosage: 50 MILLIGRAM, QD
     Route: 065
  4. VALPROATE SODIUM [Concomitant]
     Active Substance: VALPROATE SODIUM
     Dosage: 1750 MILLIGRAM, QD
     Route: 065

REACTIONS (4)
  - Neutropenia [Recovered/Resolved]
  - Leukocytosis [Recovered/Resolved]
  - Neutrophil count increased [Recovered/Resolved]
  - Off label use [Unknown]

NARRATIVE: CASE EVENT DATE: 20221015
